FAERS Safety Report 12648748 (Version 1)
Quarter: 2016Q3

REPORT INFORMATION
  Report Type: Spontaneous
  Country: US (occurrence: US)
  Receive Date: 20160812
  Receipt Date: 20160812
  Transmission Date: 20161109
  Serious: No
  Sender: FDA-Public Use
  Company Number: US-PFIZER INC-2016376066

PATIENT
  Age: 53 Year
  Sex: Male
  Weight: 88.45 kg

DRUGS (3)
  1. GABAPENTIN. [Suspect]
     Active Substance: GABAPENTIN
     Indication: NERVE COMPRESSION
     Dosage: 600 MG, 3X/DAY(300 MG 2 TABLETS BY MOUTH 3 TIMES A DAY)
     Route: 048
     Dates: start: 201602
  2. GABAPENTIN. [Suspect]
     Active Substance: GABAPENTIN
     Dosage: 1X/DAY (ONCE PER DAY)
     Route: 048
  3. GABAPENTIN. [Suspect]
     Active Substance: GABAPENTIN
     Dosage: 300 MG AT NIGHT
     Route: 048
     Dates: end: 2016

REACTIONS (2)
  - Nipple pain [Recovering/Resolving]
  - Product use issue [Unknown]

NARRATIVE: CASE EVENT DATE: 2016
